FAERS Safety Report 21137043 (Version 1)
Quarter: 2022Q3

REPORT INFORMATION
  Report Type: Spontaneous
  Country: IR (occurrence: IR)
  Receive Date: 20220727
  Receipt Date: 20220727
  Transmission Date: 20221027
  Serious: Yes (Congenital Anomaly, Other)
  Sender: FDA-Public Use
  Company Number: IR-NOVARTISPH-NVSC2022IR165341

PATIENT
  Age: 24 Month
  Sex: Male

DRUGS (7)
  1. ONDANSETRON [Suspect]
     Active Substance: ONDANSETRON
     Indication: Foetal exposure during pregnancy
     Dosage: MATERNAL DOSE: 4 MG, THRICE DAILY BEFORE EACH MEAL
     Route: 064
  2. CABERGOLINE [Suspect]
     Active Substance: CABERGOLINE
     Indication: Foetal exposure during pregnancy
     Dosage: MATERNAL DOSE: 0.5 MG TWICE A WEEK FOR 6 MONTHS INCLUDING FIRST TRIMESTER
     Route: 064
  3. FAMOTIDINE [Suspect]
     Active Substance: FAMOTIDINE
     Indication: Foetal exposure during pregnancy
     Dosage: MATERNAL DOSE: 20 MG, TWICE DAILY
     Route: 064
  4. IRON [Concomitant]
     Active Substance: IRON
     Indication: Foetal exposure during pregnancy
     Dosage: UNK
     Route: 064
  5. FOLIC ACID [Concomitant]
     Active Substance: FOLIC ACID
     Indication: Foetal exposure during pregnancy
     Route: 064
  6. IODINE [Concomitant]
     Active Substance: IODINE
     Indication: Foetal exposure during pregnancy
     Dosage: UNK
     Route: 064
  7. CALCIUM [Concomitant]
     Active Substance: CALCIUM
     Indication: Foetal exposure during pregnancy
     Route: 064

REACTIONS (2)
  - Syndactyly [Unknown]
  - Foetal exposure during pregnancy [Unknown]
